FAERS Safety Report 4601321-X (Version None)
Quarter: 2005Q2

REPORT INFORMATION
  Report Type: 
  Country: None (occurrence: None)
  Receive Date: 20050202
  Receipt Date: 20041007
  Transmission Date: 20051028
  Serious: Yes (Other)
  Sender: FDA-Public Use
  Company Number: 10063422-NA01-1

PATIENT
  Sex: 0

DRUGS (1)
  1. SODIUM CHLORIDE 0.9% [Suspect]
     Dosage: IV
     Route: 042

REACTIONS (1)
  - DYSGEUSIA [None]
